FAERS Safety Report 4422960-5 (Version None)
Quarter: 2004Q3

REPORT INFORMATION
  Report Type: 
  Country: None (occurrence: None)
  Receive Date: 20040809
  Receipt Date: 20040809
  Transmission Date: 20050211
  Serious: No
  Sender: FDA-Public Use
  Company Number: None

PATIENT
  Age: 66 Year
  Sex: Male

DRUGS (2)
  1. HYDROMORPHONE HCL [Suspect]
     Indication: PAIN
     Dosage: 2 Q4
  2. FENTANYL [Suspect]
     Indication: PAIN
     Dosage: 75 MEG Q72

REACTIONS (1)
  - HYPOTENSION [None]
